FAERS Safety Report 5622840-3 (Version None)
Quarter: 2008Q1

REPORT INFORMATION
  Report Type: 
  Country: None (occurrence: None)
  Receive Date: 20080212
  Receipt Date: 20080130
  Transmission Date: 20080703
  Serious: Yes (Hospitalization)
  Sender: FDA-Public Use
  Company Number: US-ELI_LILLY_AND_COMPANY-US200801006850

PATIENT
  Sex: Female
  Weight: 164.63 kg

DRUGS (17)
  1. ZYPREXA ZYDIS [Suspect]
     Indication: MOOD SWINGS
     Dosage: 5 MG, DAILY (1/D)
     Dates: start: 20071201
  2. ZYPREXA ZYDIS [Suspect]
     Dosage: 15 MG, UNK
     Dates: end: 20080101
  3. NORCO [Concomitant]
     Indication: PAIN
     Dosage: 1 D/F, UNK
  4. METHOCARBAMOL [Concomitant]
  5. EFFEXOR XR [Concomitant]
     Dosage: 375 MG, UNK
  6. KLONOPIN [Concomitant]
     Dosage: 1 MG, 3/D
  7. LYRICA [Concomitant]
     Dosage: 15 MG, 3/D
  8. TRAZODIL [Concomitant]
     Indication: INSOMNIA
     Dosage: 200 MG, EACH EVENING
  9. AMBIEN [Concomitant]
     Indication: INSOMNIA
  10. WELCHOL [Concomitant]
     Indication: METAL POISONING
  11. DOXYHEXAL [Concomitant]
     Indication: LYME DISEASE
  12. CELEBREX [Concomitant]
     Indication: INFLAMMATION
  13. CYTOMEL [Concomitant]
  14. LEVOTHYROXINE SODIUM [Concomitant]
     Indication: THYROID DISORDER
  15. NEXIUM [Concomitant]
     Indication: GASTROOESOPHAGEAL REFLUX DISEASE
  16. LASIX [Concomitant]
     Indication: OEDEMA PERIPHERAL
  17. FENTANYL [Concomitant]
     Route: 062

REACTIONS (7)
  - BLOOD CHOLESTEROL INCREASED [None]
  - BLOOD PRESSURE DECREASED [None]
  - DIZZINESS [None]
  - HYPOKINESIA [None]
  - PULMONARY EMBOLISM [None]
  - TREMOR [None]
  - WEIGHT INCREASED [None]
